FAERS Safety Report 6999360-7 (Version None)
Quarter: 2010Q3

REPORT INFORMATION
  Report Type: 
  Country: None (occurrence: None)
  Receive Date: 20100920
  Receipt Date: 20091030
  Transmission Date: 20110219
  Serious: No
  Sender: FDA-Public Use
  Company Number: US-ASTRAZENECA-2009SE24045

PATIENT
  Age: 57 Year
  Sex: Female

DRUGS (1)
  1. SEROQUEL XR [Suspect]
     Route: 048
     Dates: end: 20090801

REACTIONS (3)
  - AMNESIA [None]
  - FATIGUE [None]
  - WEIGHT INCREASED [None]
